FAERS Safety Report 8030113-7 (Version None)
Quarter: 2012Q1

REPORT INFORMATION
  Report Type: 
  Country: None (occurrence: None)
  Receive Date: 20120105
  Receipt Date: 20111215
  Transmission Date: 20120608
  Serious: Yes (Hospitalization)
  Sender: FDA-Public Use
  Company Number: 899707

PATIENT
  Age: 56 Year
  Sex: Female
  Weight: 44.4525 kg

DRUGS (4)
  1. PERMETHRIN [Suspect]
     Indication: LICE INFESTATION
     Dosage: APPLICATION ONTO BODY, TOPICAL 060
     Route: 061
     Dates: start: 20111210
  2. PERMETHRIN [Suspect]
     Indication: DRUG THERAPY
     Dosage: APPLICATION ONTO BODY, TOPICAL 060
     Route: 061
     Dates: start: 20111210
  3. PERMETHRIN [Suspect]
     Indication: OFF LABEL USE
     Dosage: APPLICATION ONTO BODY, TOPICAL 060
     Route: 061
     Dates: start: 20111210
  4. WARFARIN SODIUM [Concomitant]

REACTIONS (19)
  - JOINT SWELLING [None]
  - OEDEMA PERIPHERAL [None]
  - SUICIDAL IDEATION [None]
  - PULMONARY EMBOLISM [None]
  - PYREXIA [None]
  - ARTHROPOD BITE [None]
  - NASAL ULCER [None]
  - DEHYDRATION [None]
  - DANDRUFF [None]
  - EAR DISORDER [None]
  - EAR PAIN [None]
  - INSOMNIA [None]
  - WEIGHT DECREASED [None]
  - PNEUMONIA [None]
  - INTENTIONAL DRUG MISUSE [None]
  - EYE HAEMORRHAGE [None]
  - HEADACHE [None]
  - ABDOMINAL DISCOMFORT [None]
  - HEART RATE INCREASED [None]
